FAERS Safety Report 4401081-1 (Version None)
Quarter: 2004Q3

REPORT INFORMATION
  Report Type: 
  Country: None (occurrence: None)
  Receive Date: 20040907
  Receipt Date: 20031021
  Transmission Date: 20050211
  Serious: No
  Sender: FDA-Public Use
  Company Number: US-BRISTOL-MYERS SQUIBB COMPANY-12415683

PATIENT
  Age: 45 Year
  Sex: Female
  Weight: 129 kg

DRUGS (18)
  1. WARFARIN SODIUM [Suspect]
     Indication: KNEE ARTHROPLASTY
     Route: 048
     Dates: start: 20030520, end: 20030616
  2. INSULIN [Concomitant]
  3. SPIRONOLACTONE [Concomitant]
  4. LIPITOR [Concomitant]
  5. ALLEGRA [Concomitant]
  6. CELEXA [Concomitant]
  7. NEURONTIN [Concomitant]
  8. PERCOCET [Concomitant]
  9. OXYCONTIN [Concomitant]
  10. GLYBURIDE [Concomitant]
  11. PROTONIX [Concomitant]
  12. CELEBREX [Concomitant]
  13. TRAZODONE HCL [Concomitant]
  14. ZANAFLEX [Concomitant]
  15. PROVIGIL [Concomitant]
  16. VITAMIN E [Concomitant]
  17. ASPIRIN [Concomitant]
  18. ALBUTEROL [Concomitant]

REACTIONS (1)
  - DYSGEUSIA [None]
